FAERS Safety Report 13702672 (Version 1)
Quarter: 2017Q2

REPORT INFORMATION
  Report Type: Spontaneous
  Country: US (occurrence: US)
  Receive Date: 20170629
  Receipt Date: 20170629
  Transmission Date: 20170830
  Serious: Yes (Congenital Anomaly, Other)
  Sender: FDA-Public Use
  Company Number: US-FRESENIUS KABI-FK201705534

PATIENT

DRUGS (1)
  1. VALPROATE [Suspect]
     Active Substance: VALPROIC ACID
     Indication: STATUS EPILEPTICUS
     Route: 064

REACTIONS (3)
  - Foetal exposure during pregnancy [Unknown]
  - Meningomyelocele [Unknown]
  - Maternal drugs affecting foetus [Unknown]
